FAERS Safety Report 19874695 (Version 2)
Quarter: 2022Q1

REPORT INFORMATION
  Report Type: Report from Study
  Country: IT (occurrence: IT)
  Receive Date: 20210923
  Receipt Date: 20220204
  Transmission Date: 20220423
  Serious: Yes (Other)
  Sender: FDA-Public Use
  Company Number: IT-ACRAF SPA-2021-025631

PATIENT

DRUGS (1)
  1. LATUDA [Suspect]
     Active Substance: LURASIDONE HYDROCHLORIDE
     Indication: Product used for unknown indication
     Dosage: 37.5 MG, QD (1 TABLET PER DAY )
     Route: 048

REACTIONS (4)
  - Staring [Recovered/Resolved]
  - Stupor [Recovered/Resolved]
  - Aphasia [Recovered/Resolved]
  - Derealisation [Recovered/Resolved]
